FAERS Safety Report 5286735-X (Version None)
Quarter: 2007Q1

REPORT INFORMATION
  Report Type: 
  Country: None (occurrence: None)
  Receive Date: 20070329
  Receipt Date: 20070327
  Transmission Date: 20070707
  Serious: Yes (Hospitalization)
  Sender: FDA-Public Use
  Company Number: TCI2007A01482

PATIENT
  Age: 57 Year
  Sex: Male

DRUGS (1)
  1. LANSAP 400 (LANSOPRAZOLE, CLARITHROMYCIN,  AMOXICILLIN/) (PREPARATION [Suspect]
     Indication: HELICOBACTER INFECTION
     Dosage: 1 CARD (0.5 CARD, 2 IN 1 D) PER ORAL
     Route: 048
     Dates: start: 20061019, end: 20061025

REACTIONS (2)
  - DIARRHOEA [None]
  - HYPOALBUMINAEMIA [None]
